FAERS Safety Report 6328567-7 (Version None)
Quarter: 2009Q3

REPORT INFORMATION
  Report Type: 
  Country: None (occurrence: None)
  Receive Date: 20090826
  Receipt Date: 20090820
  Transmission Date: 20100115
  Serious: Yes (Death, Other)
  Sender: FDA-Public Use
  Company Number: DE-CELGENEUS-062-20785-09081514

PATIENT
  Sex: Male

DRUGS (2)
  1. THALOMID [Suspect]
     Indication: METASTATIC RENAL CELL CARCINOMA
     Dosage: MAX DOSE OF 400MG
     Route: 048
     Dates: start: 20030101, end: 20060101
  2. CAPECITABINE [Suspect]
     Indication: METASTATIC RENAL CELL CARCINOMA
     Dosage: 1250 MG/QM^2
     Route: 048
     Dates: start: 20030101, end: 20060101

REACTIONS (9)
  - CONSTIPATION [None]
  - DIARRHOEA [None]
  - METASTATIC RENAL CELL CARCINOMA [None]
  - NAUSEA [None]
  - PAIN IN EXTREMITY [None]
  - PARAESTHESIA [None]
  - PLATELET DISORDER [None]
  - RASH [None]
  - VOMITING [None]
